FAERS Safety Report 8892640 (Version 1)
Quarter: 2012Q4

REPORT INFORMATION
  Report Type: 
  Country: US (occurrence: US)
  Receive Date: 20121107
  Receipt Date: 20121107
  Transmission Date: 20130627
  Serious: No
  Sender: FDA-Public Use
  Company Number: US-AMGEN-USASP2011057403

PATIENT
  Age: 84 Year
  Sex: Female
  Weight: 62.59 kg

DRUGS (9)
  1. ENBREL [Suspect]
     Indication: PRODUCT USED FOR UNKNOWN INDICATION
     Dosage: 50 mg, qwk
     Route: 058
  2. METOPROLOL [Concomitant]
     Dosage: 25 mg, UNK
  3. FOLIC ACID [Concomitant]
     Dosage: 1 mg, UNK
  4. EVISTA [Concomitant]
     Dosage: 60 mg, UNK
  5. METHOTREXATE [Concomitant]
     Dosage: 2.5 mg, UNK
  6. ASPIRIN [Concomitant]
     Dosage: 81 mg, UNK
  7. LIPITOR [Concomitant]
     Dosage: 10 mg, UNK
  8. VITAMIN D /00107901/ [Concomitant]
     Dosage: 1000 mg, UNK
  9. LORAZEPAM [Concomitant]
     Dosage: .5 mg, UNK

REACTIONS (2)
  - Basal cell carcinoma [Recovering/Resolving]
  - Injection site haemorrhage [Unknown]
